FAERS Safety Report 17682666 (Version 1)
Quarter: 2020Q2

REPORT INFORMATION
  Report Type: Spontaneous
  Country: GB (occurrence: GB)
  Receive Date: 20200419
  Receipt Date: 20200419
  Transmission Date: 20200714
  Serious: Yes (Other)
  Sender: FDA-Public Use
  Company Number: GB-ASTRAZENECA-2020SE50660

PATIENT
  Age: 33 Year
  Sex: Female
  Weight: 128 kg

DRUGS (16)
  1. NORGESTON [Concomitant]
     Dosage: MINI PILL - TAKE AT THE SAME TIME, 1 DOSAGE FORM 12 - DAILY
     Dates: start: 20200323
  2. COLECALCIFEROL [Concomitant]
     Active Substance: CHOLECALCIFEROL
     Dosage: 2 DAILY FOR 2 WEEKS THEN 1 DAILY
     Dates: start: 20200116
  3. GLUCOPHAGE [Concomitant]
     Active Substance: METFORMIN HYDROCHLORIDE
     Indication: HYPERGLYCAEMIA
     Dosage: TAKE WITH BREAKFAST TO HELP REDUCE GLUCOSE
     Dates: start: 20200106
  4. METFORMIN [Concomitant]
     Active Substance: METFORMIN HYDROCHLORIDE
     Indication: HYPERGLYCAEMIA
     Dosage: TAKE WITH BREAKFAST TO HELP REDUCE GLUCOSE
     Dates: start: 20190829, end: 20200106
  5. APIDRA [Concomitant]
     Active Substance: INSULIN GLULISINE
     Dosage: USE IN PUMP
     Dates: start: 20190807
  6. ABASAGLAR [Concomitant]
     Active Substance: INSULIN GLARGINE
     Dosage: USE IF PUMP FAILS
     Dates: start: 20190621
  7. NOVO NORDISK A/S GLUCAGON [Concomitant]
     Indication: HYPOGLYCAEMIA
     Dosage: USE AS DIRECTED
     Dates: start: 20190621
  8. PROPANTHELINE BROMIDE. [Concomitant]
     Active Substance: PROPANTHELINE BROMIDE
     Indication: HYPERHIDROSIS
     Dates: start: 20190806
  9. DEXTROGEL [Concomitant]
     Indication: HYPOGLYCAEMIA
     Dates: start: 20191115
  10. HUMALOG [Concomitant]
     Active Substance: INSULIN LISPRO
     Indication: HYPERGLYCAEMIA
     Dosage: VIA PUMP TOM REDUCE GLUCOSE
     Dates: start: 20200116
  11. FLUCONAZOLE. [Concomitant]
     Active Substance: FLUCONAZOLE
     Dates: start: 20200203, end: 20200210
  12. FLUCLOXACILLIN [Concomitant]
     Active Substance: FLUCLOXACILLIN
     Dates: start: 20200319, end: 20200326
  13. VICTOZA [Concomitant]
     Active Substance: LIRAGLUTIDE
     Dosage: AS PER LATEST INSTRUCTION FROM SECONDARY CARE 3...
     Dates: start: 20190621, end: 20200116
  14. DIAZEPAM. [Concomitant]
     Active Substance: DIAZEPAM
     Dosage: TAKE THREE TIMES/DAY
     Dates: start: 20200106, end: 20200115
  15. DAPAGLIFLOZIN. [Suspect]
     Active Substance: DAPAGLIFLOZIN
     Indication: BLOOD GLUCOSE INCREASED
     Route: 048
     Dates: start: 20200309
  16. SERTRALINE [Concomitant]
     Active Substance: SERTRALINE HYDROCHLORIDE
     Dates: start: 20190621

REACTIONS (1)
  - Dyspepsia [Unknown]

NARRATIVE: CASE EVENT DATE: 20200326
